FAERS Safety Report 25112772 (Version 2)
Quarter: 2025Q1

REPORT INFORMATION
  Report Type: Spontaneous
  Country: US (occurrence: US)
  Receive Date: 20250324
  Receipt Date: 20250325
  Transmission Date: 20250409
  Serious: No
  Sender: UCB
  Company Number: US-UCBSA-2024066058

PATIENT
  Age: 41 Year
  Sex: Male

DRUGS (1)
  1. BIMEKIZUMAB [Suspect]
     Active Substance: BIMEKIZUMAB
     Indication: Psoriasis
     Dosage: 360 MILLIGRAM, EV 4 WEEKS
     Route: 058
     Dates: start: 20240806

REACTIONS (6)
  - Swelling [Not Recovered/Not Resolved]
  - Pain [Not Recovered/Not Resolved]
  - Erythema [Not Recovered/Not Resolved]
  - Bacterial infection [Unknown]
  - Candida infection [Not Recovered/Not Resolved]
  - Drug ineffective [Unknown]

NARRATIVE: CASE EVENT DATE: 20241101
